FAERS Safety Report 21345209 (Version 1)
Quarter: 2022Q3

REPORT INFORMATION
  Report Type: Spontaneous
  Country: DO (occurrence: DO)
  Receive Date: 20220916
  Receipt Date: 20220916
  Transmission Date: 20221026
  Serious: Yes (Hospitalization)
  Sender: FDA-Public Use
  Company Number: DO-BAYER-2022A128071

PATIENT
  Age: 74 Year
  Sex: Female

DRUGS (2)
  1. XARELTO [Suspect]
     Active Substance: RIVAROXABAN
     Indication: Venous thrombosis
     Dosage: 20 MG
     Route: 048
     Dates: start: 201910
  2. XARELTO [Suspect]
     Active Substance: RIVAROXABAN
     Indication: Venous thrombosis

REACTIONS (2)
  - Patella fracture [Unknown]
  - Fall [Unknown]

NARRATIVE: CASE EVENT DATE: 20220513
